FAERS Safety Report 8323125-7 (Version None)
Quarter: 2012Q2

REPORT INFORMATION
  Report Type: 
  Country: None (occurrence: None)
  Receive Date: 20120430
  Receipt Date: 20120424
  Transmission Date: 20120825
  Serious: Yes (Other)
  Sender: FDA-Public Use
  Company Number: PHEH2012US000447

PATIENT
  Sex: Female

DRUGS (2)
  1. EXTAVIA [Suspect]
     Indication: MULTIPLE SCLEROSIS
     Dosage: 0.25 MG, QOD
     Route: 058
     Dates: start: 20110424
  2. BACLOFEN [Concomitant]

REACTIONS (4)
  - FALL [None]
  - BALANCE DISORDER [None]
  - WRIST FRACTURE [None]
  - MUSCULAR WEAKNESS [None]
